FAERS Safety Report 8816508 (Version 1)
Quarter: 2012Q4

REPORT INFORMATION
  Report Type: Spontaneous
  Country: DK (occurrence: None)
  Receive Date: 20120927
  Receipt Date: 20120927
  Transmission Date: 20130627
  Serious: Yes (Other)
  Sender: FDA-Public Use
  Company Number: 2012MA011541

PATIENT
  Age: 79 Year
  Sex: Female

DRUGS (3)
  1. LOSARTAN POTASSIUM [Suspect]
     Route: 048
     Dates: start: 20120814
  2. BISOPROLOL [Concomitant]
  3. BENDROFLUMETHAZIDE [Concomitant]

REACTIONS (3)
  - Dizziness [None]
  - Visual impairment [None]
  - Myalgia [None]
